FAERS Safety Report 19404721 (Version 1)
Quarter: 2021Q2

REPORT INFORMATION
  Report Type: Spontaneous
  Country: CA (occurrence: CA)
  Receive Date: 20210611
  Receipt Date: 20210611
  Transmission Date: 20210717
  Serious: Yes (Hospitalization)
  Sender: FDA-Public Use
  Company Number: CA-CELLTRION INC.-2021CA008011

PATIENT

DRUGS (2)
  1. INFLECTRA [Suspect]
     Active Substance: INFLIXIMAB-DYYB
     Indication: COLITIS ULCERATIVE
     Dosage: 10 MG/KG, AT WEEKS 0,2,6 AND THEN Q 8 WEEKS
     Route: 042
     Dates: start: 20210518
  2. INFLECTRA [Suspect]
     Active Substance: INFLIXIMAB-DYYB
     Dosage: 10 MG/KG, AT WEEKS 0,2,6 AND THEN Q 8 WEEKS
     Route: 042
     Dates: start: 20210523

REACTIONS (9)
  - Condition aggravated [Unknown]
  - Feeling cold [Unknown]
  - Inappropriate schedule of product administration [Unknown]
  - Panic reaction [Unknown]
  - Undersensing [Unknown]
  - Malaise [Unknown]
  - Venous thrombosis [Unknown]
  - Fatigue [Unknown]
  - Thrombosis [Unknown]

NARRATIVE: CASE EVENT DATE: 202105
